FAERS Safety Report 11382902 (Version 3)
Quarter: 2016Q4

REPORT INFORMATION
  Report Type: Spontaneous
  Country: RO (occurrence: RO)
  Receive Date: 20150814
  Receipt Date: 20161229
  Transmission Date: 20170206
  Serious: Yes (Hospitalization, Other)
  Sender: FDA-Public Use
  Company Number: RO-TOLMAR, INC.-2015RO007236

PATIENT
  Sex: Male

DRUGS (1)
  1. ELIGARD [Suspect]
     Active Substance: LEUPROLIDE ACETATE
     Indication: PROSTATE CANCER
     Dosage: 7.5 MG, ONE DOSE PER MONTH
     Route: 058
     Dates: start: 20150803

REACTIONS (3)
  - Injection site erythema [Recovering/Resolving]
  - Induration [Recovering/Resolving]
  - Injection site infection [Unknown]

NARRATIVE: CASE EVENT DATE: 20150803
